FAERS Safety Report 26070215 (Version 1)
Quarter: 2025Q4

REPORT INFORMATION
  Report Type: Spontaneous
  Country: TW (occurrence: TW)
  Receive Date: 20251120
  Receipt Date: 20251120
  Transmission Date: 20260118
  Serious: Yes (Hospitalization)
  Sender: NOVARTIS
  Company Number: TW-002147023-NVSC2025TW175446

PATIENT
  Age: 51 Year
  Sex: Female
  Weight: 74.2 kg

DRUGS (4)
  1. MEKINIST [Suspect]
     Active Substance: TRAMETINIB DIMETHYL SULFOXIDE
     Indication: Neoplasm malignant
     Dosage: 2.25 MG
     Route: 065
  2. MEKINIST [Suspect]
     Active Substance: TRAMETINIB DIMETHYL SULFOXIDE
     Indication: Metastases to lung
     Dosage: UNK, QD
     Route: 065
     Dates: start: 20250815
  3. MEKINIST [Suspect]
     Active Substance: TRAMETINIB DIMETHYL SULFOXIDE
     Indication: Metastases to lymph nodes
     Dosage: UNK, QD
     Route: 065
     Dates: start: 20250930, end: 20251002
  4. MEKINIST [Suspect]
     Active Substance: TRAMETINIB DIMETHYL SULFOXIDE
     Indication: Ovarian cancer

REACTIONS (9)
  - Diarrhoea [Recovered/Resolved]
  - Urine output decreased [Unknown]
  - Acne [Unknown]
  - Face oedema [Unknown]
  - Rash [Unknown]
  - Oropharyngeal pain [Unknown]
  - Tonsillitis [Unknown]
  - Pyrexia [Unknown]
  - Off label use [Unknown]

NARRATIVE: CASE EVENT DATE: 20250825
